FAERS Safety Report 8043341-1 (Version None)
Quarter: 2012Q1

REPORT INFORMATION
  Report Type: 
  Country: None (occurrence: None)
  Receive Date: 20120112
  Receipt Date: 20120106
  Transmission Date: 20120608
  Serious: Yes (Other)
  Sender: FDA-Public Use
  Company Number: JP-GLAXOSMITHKLINE-B0774555A

PATIENT
  Age: 28 Year
  Sex: Female

DRUGS (4)
  1. LAMICTAL [Suspect]
     Indication: PRODUCT USED FOR UNKNOWN INDICATION
     Dosage: 25MG PER DAY
     Route: 048
     Dates: start: 20111202, end: 20111214
  2. MEILAX [Concomitant]
     Dosage: 2MG PER DAY
     Route: 048
     Dates: start: 20111202, end: 20111214
  3. ZOLOFT [Concomitant]
     Dosage: 25MG PER DAY
     Route: 048
     Dates: start: 20111202, end: 20111214
  4. ZOLPIDEM [Concomitant]
     Dosage: 10MG PER DAY
     Route: 048
     Dates: start: 20111202, end: 20111214

REACTIONS (2)
  - ERYTHEMA MULTIFORME [None]
  - SKIN DISORDER [None]
